FAERS Safety Report 14912564 (Version 9)
Quarter: 2020Q1

REPORT INFORMATION
  Report Type: Report from Study
  Country: DE (occurrence: DE)
  Receive Date: 20180518
  Receipt Date: 20200207
  Transmission Date: 20200409
  Serious: Yes (Hospitalization, Other)
  Sender: FDA-Public Use
  Company Number: DE-ROCHE-2121572

PATIENT
  Age: 38 Year
  Sex: Female
  Weight: 100 kg

DRUGS (7)
  1. TOLPERISONE [Concomitant]
     Active Substance: TOLPERISONE
     Dosage: 0-1-0
     Route: 065
  2. OCREVUS [Suspect]
     Active Substance: OCRELIZUMAB
     Route: 042
     Dates: start: 20181025
  3. DRONABINOL. [Concomitant]
     Active Substance: DRONABINOL
     Route: 065
  4. SATIVEX [Concomitant]
     Active Substance: NABIXIMOLS
     Indication: MUSCLE SPASTICITY
     Route: 048
     Dates: start: 201709
  5. OCREVUS [Suspect]
     Active Substance: OCRELIZUMAB
     Indication: SECONDARY PROGRESSIVE MULTIPLE SCLEROSIS
     Dosage: SECOND INFUSION: 09/MAY/2018
     Route: 042
     Dates: start: 20180425
  6. TOLPERISONE [Concomitant]
     Active Substance: TOLPERISONE
     Dosage: 1-1-0
     Route: 065
  7. OCREVUS [Suspect]
     Active Substance: OCRELIZUMAB
     Route: 042
     Dates: start: 20191019

REACTIONS (15)
  - Insomnia [Recovered/Resolved]
  - Intentional product use issue [Unknown]
  - Erythema [Recovered/Resolved]
  - Atonic urinary bladder [Not Recovered/Not Resolved]
  - Device occlusion [Recovered/Resolved]
  - Nasopharyngitis [Recovered/Resolved]
  - Off label use [Unknown]
  - Multiple sclerosis relapse [Recovered/Resolved]
  - Fatigue [Recovered/Resolved]
  - Rhinitis [Recovered/Resolved]
  - Feeling hot [Recovered/Resolved]
  - Nasopharyngitis [Recovered/Resolved]
  - Urinary tract infection [Recovered/Resolved]
  - Cough [Recovered/Resolved]
  - Headache [Recovered/Resolved]

NARRATIVE: CASE EVENT DATE: 20180425
